FAERS Safety Report 9230850 (Version 2)
Quarter: 2013Q2

REPORT INFORMATION
  Report Type: Spontaneous
  Country: US (occurrence: US)
  Receive Date: 20130415
  Receipt Date: 20130426
  Transmission Date: 20140414
  Serious: Yes (Other)
  Sender: FDA-Public Use
  Company Number: PHEH2013US008014

PATIENT
  Sex: 0

DRUGS (1)
  1. SIGNIFOR [Suspect]
     Indication: CUSHING^S SYNDROME

REACTIONS (1)
  - Insulin resistance [Unknown]
